FAERS Safety Report 6847815-8 (Version None)
Quarter: 2010Q3

REPORT INFORMATION
  Report Type: 
  Country: None (occurrence: None)
  Receive Date: 20100716
  Receipt Date: 20100706
  Transmission Date: 20110219
  Serious: Yes (Life-Threatening, Hospitalization)
  Sender: FDA-Public Use
  Company Number: FR-PFIZER INC-2010085933

PATIENT
  Age: 24 Year
  Sex: Female

DRUGS (5)
  1. ATARAX [Suspect]
     Indication: ANXIETY
     Dosage: 1 DF, ALTERNATE DAY
     Route: 048
     Dates: start: 20100320, end: 20100405
  2. ATARAX [Suspect]
     Dosage: 1 DF, ALTERNATE DAY
     Dates: start: 20100320, end: 20100405
  3. FLUOXETINE [Suspect]
     Indication: ANXIETY
     Dosage: 20 MG, UNK
     Route: 048
     Dates: start: 20100326, end: 20100406
  4. DOLIPRANE [Suspect]
     Indication: HEADACHE
     Dosage: 1 G, UNK
     Route: 048
     Dates: start: 20100403, end: 20100403
  5. NUVARING [Suspect]
     Indication: CONTRACEPTION
     Dosage: 1 DF, MONTHLY
     Route: 067
     Dates: start: 20090101

REACTIONS (2)
  - IDIOPATHIC THROMBOCYTOPENIC PURPURA [None]
  - SUICIDE ATTEMPT [None]
